FAERS Safety Report 8769373 (Version 2)
Quarter: 2012Q4

REPORT INFORMATION
  Report Type: 
  Country: US (occurrence: US)
  Receive Date: 20120905
  Receipt Date: 20120926
  Transmission Date: 20130627
  Serious: Yes (Death, Other)
  Sender: FDA-Public Use
  Company Number: US-BAYER-2012-092127

PATIENT
  Age: 71 Year
  Sex: Female
  Weight: 102 kg

DRUGS (29)
  1. TRASYLOL [Suspect]
     Indication: CORONARY ARTERY BYPASS
     Dosage: 200 ml, UNK
     Route: 042
     Dates: start: 20020906, end: 20020906
  2. TRASYLOL [Suspect]
     Indication: MITRAL VALVE REPAIR
     Dosage: 50 ml, continuous infusion
     Route: 042
     Dates: start: 20020906
  3. TRASYLOL [Suspect]
     Indication: TRICUSPID VALVE REPAIR
  4. PROTONIX [Concomitant]
     Dosage: 40 mg, QD
     Route: 048
  5. BUMEX [Concomitant]
     Dosage: 1 mg, QD
     Route: 048
  6. AMBIEN [Concomitant]
     Dosage: 5 mg, PRN
     Route: 048
  7. PRAVACHOL [Concomitant]
     Dosage: 40 mg, QD
     Route: 048
  8. LABETALOL [Concomitant]
     Dosage: 200 mg, BID
     Route: 048
  9. ANEMAGEN [ASCORBIC ACID,CYANOCOBALAMIN,FERROUS FUMARATE] [Concomitant]
     Dosage: 1 DF, QD
     Route: 048
  10. HUMULIN N [Concomitant]
     Dosage: 48 u, QD
     Route: 058
  11. FENTANYL [Concomitant]
     Dosage: UNK
     Dates: start: 20020906, end: 20020906
  12. VERSED [Concomitant]
     Dosage: UNK
     Dates: start: 20020906, end: 20020906
  13. PAVULON [Concomitant]
     Dosage: UNK
     Dates: start: 20020906, end: 20020906
  14. SOLUMEDROL [Concomitant]
     Dosage: 1 g, UNK
     Dates: start: 20020906, end: 20020906
  15. BENADRYL [Concomitant]
     Dosage: 50 mg, UNK
     Dates: start: 20020906, end: 20020906
  16. INSULIN [Concomitant]
     Dosage: UNK
     Dates: start: 20020906, end: 20020906
  17. PRIMACOR [Concomitant]
     Dosage: UNK
     Dates: start: 20020906, end: 20020906
  18. XYLOCAINE [Concomitant]
     Dosage: UNK
     Dates: start: 20020906, end: 20020906
  19. CARDENE [Concomitant]
     Dosage: 1 mg, UNK
     Dates: start: 20020906, end: 20020906
  20. MAGNESIUM SULFATE [Concomitant]
     Dosage: 3 g, UNK
     Dates: start: 20020906, end: 20020906
  21. CORLOPAM [Concomitant]
     Dosage: UNK
     Dates: start: 20020906, end: 20020906
  22. DOBUTREX [Concomitant]
     Dosage: UNK
     Dates: start: 20020906
  23. EPINEPHRINE [Concomitant]
     Dosage: UNK
     Dates: start: 20020906, end: 20020906
  24. LASIX [Concomitant]
     Dosage: 20 mg, UNK
     Dates: start: 20020906, end: 20020906
  25. NITROGLYCERINE [Concomitant]
     Dosage: UNK
     Dates: start: 20020906
  26. LEVOPHED [Concomitant]
     Dosage: UNK
     Dates: start: 20020906
  27. ANCEF [Concomitant]
     Dosage: 1 g, UNK
     Dates: start: 20020906, end: 20020906
  28. PROTAMINE [Concomitant]
     Dosage: UNK
     Dates: start: 20020906, end: 20020906
  29. MANNITOL [Concomitant]
     Dosage: 12.5 g, UNK
     Dates: start: 20020906, end: 20020906

REACTIONS (2)
  - Cardiac failure [Fatal]
  - Renal failure acute [None]
